FAERS Safety Report 5715335-X (Version None)
Quarter: 2008Q2

REPORT INFORMATION
  Report Type: 
  Country: None (occurrence: None)
  Receive Date: 20080423
  Receipt Date: 20080416
  Transmission Date: 20081010
  Serious: Yes (Other)
  Sender: FDA-Public Use
  Company Number: US-MERCK-0804USA01278

PATIENT
  Age: 8 Year
  Sex: Female

DRUGS (4)
  1. SINGULAIR [Suspect]
     Indication: ASTHMA
     Route: 048
     Dates: start: 20040301, end: 20080301
  2. SYNTHROID [Concomitant]
     Route: 065
     Dates: start: 19991001
  3. ALBUTEROL [Concomitant]
     Indication: ASTHMA
     Route: 065
  4. XOPENEX [Concomitant]
     Indication: ASTHMA
     Route: 065

REACTIONS (1)
  - SUICIDE ATTEMPT [None]
